FAERS Safety Report 17755110 (Version 1)
Quarter: 2020Q2

REPORT INFORMATION
  Report Type: Spontaneous
  Country: US (occurrence: US)
  Receive Date: 20200507
  Receipt Date: 20200507
  Transmission Date: 20200714
  Serious: Yes (Death, Life-Threatening, Hospitalization, Other)
  Sender: FDA-Public Use
  Company Number: US-HIKMA PHARMACEUTICALS USA INC.-US-H14001-20-02143

PATIENT
  Age: 64 Year
  Sex: Male
  Weight: 61.3 kg

DRUGS (31)
  1. PREDNISONE. [Suspect]
     Active Substance: PREDNISONE
     Route: 048
     Dates: start: 20170630
  2. BUDESONIDE. [Concomitant]
     Active Substance: BUDESONIDE
     Indication: PRODUCT USED FOR UNKNOWN INDICATION
     Route: 065
  3. PREDNISONE. [Suspect]
     Active Substance: PREDNISONE
     Route: 048
     Dates: start: 20170729, end: 20170804
  4. PREDNISONE. [Suspect]
     Active Substance: PREDNISONE
     Route: 048
     Dates: start: 20170810, end: 20170811
  5. PREDNISONE. [Suspect]
     Active Substance: PREDNISONE
     Route: 048
     Dates: start: 20170917, end: 20170925
  6. PREDNISONE. [Suspect]
     Active Substance: PREDNISONE
     Route: 048
     Dates: start: 20170812, end: 20170818
  7. MYCOPHENOLATE MOFETIL. [Concomitant]
     Active Substance: MYCOPHENOLATE MOFETIL
     Indication: PRODUCT USED FOR UNKNOWN INDICATION
     Route: 065
     Dates: start: 20170528
  8. RED BLOOD CELLS [Concomitant]
     Active Substance: HUMAN RED BLOOD CELL
     Indication: PRODUCT USED FOR UNKNOWN INDICATION
     Route: 065
     Dates: start: 20170801, end: 20170801
  9. INCB018424 [Suspect]
     Active Substance: RUXOLITINIB
     Indication: GRAFT VERSUS HOST DISEASE IN GASTROINTESTINAL TRACT
     Route: 048
     Dates: start: 20170630, end: 20170705
  10. INCB018424 [Suspect]
     Active Substance: RUXOLITINIB
     Route: 048
     Dates: start: 20171229, end: 20180103
  11. PREDNISONE. [Suspect]
     Active Substance: PREDNISONE
     Indication: GRAFT VERSUS HOST DISEASE IN GASTROINTESTINAL TRACT
     Route: 048
     Dates: start: 20171104
  12. PREDNISONE. [Suspect]
     Active Substance: PREDNISONE
     Route: 048
     Dates: start: 20170812, end: 20170818
  13. PREDNISONE. [Suspect]
     Active Substance: PREDNISONE
     Route: 048
     Dates: start: 20171004, end: 20171010
  14. PREDNISONE. [Suspect]
     Active Substance: PREDNISONE
     Route: 048
     Dates: start: 20171104
  15. INCB018424 [Suspect]
     Active Substance: RUXOLITINIB
     Route: 048
     Dates: start: 20170803, end: 20180122
  16. PREDNISONE. [Suspect]
     Active Substance: PREDNISONE
     Route: 048
     Dates: start: 20170910, end: 20170916
  17. METHYLPREDNISOLONE. [Suspect]
     Active Substance: METHYLPREDNISOLONE
     Indication: GRAFT VERSUS HOST DISEASE IN GASTROINTESTINAL TRACT
     Route: 042
     Dates: start: 20170630, end: 20170703
  18. METHYLPREDNISOLONE. [Suspect]
     Active Substance: METHYLPREDNISOLONE
     Route: 042
  19. TACROLIMUS. [Concomitant]
     Active Substance: TACROLIMUS
     Indication: PRODUCT USED FOR UNKNOWN INDICATION
     Route: 065
     Dates: start: 20170514
  20. ELECTROLYTES NOS [Concomitant]
     Active Substance: ELECTROLYTES NOS
     Indication: PRODUCT USED FOR UNKNOWN INDICATION
     Route: 065
  21. INCB018424 [Suspect]
     Active Substance: RUXOLITINIB
     Route: 048
     Dates: start: 20170706, end: 20170717
  22. PREDNISONE. [Suspect]
     Active Substance: PREDNISONE
     Route: 048
     Dates: start: 20170805, end: 20170809
  23. PREDNISONE. [Suspect]
     Active Substance: PREDNISONE
     Route: 048
     Dates: start: 20170926, end: 20171003
  24. PREDNISONE. [Suspect]
     Active Substance: PREDNISONE
     Route: 048
     Dates: start: 20171030, end: 20171104
  25. PREDNISONE. [Suspect]
     Active Substance: PREDNISONE
     Route: 048
     Dates: start: 20171104, end: 20171108
  26. FILGRASTIM [Concomitant]
     Active Substance: FILGRASTIM
     Indication: PRODUCT USED FOR UNKNOWN INDICATION
     Route: 065
     Dates: end: 20170729
  27. PREDNISONE. [Suspect]
     Active Substance: PREDNISONE
     Route: 065
     Dates: end: 20171229
  28. PLATELETS [Concomitant]
     Active Substance: HUMAN PLATELET, ALLOGENIC
     Indication: PRODUCT USED FOR UNKNOWN INDICATION
     Route: 065
     Dates: start: 20170801, end: 20170801
  29. INCB018424 [Suspect]
     Active Substance: RUXOLITINIB
     Route: 048
     Dates: start: 20170718, end: 20170802
  30. PREDNISONE. [Suspect]
     Active Substance: PREDNISONE
     Route: 048
     Dates: start: 20170901, end: 20170909
  31. ISAVUCONAZOLE [Concomitant]
     Active Substance: ISAVUCONAZOLE
     Indication: PRODUCT USED FOR UNKNOWN INDICATION
     Route: 065
     Dates: start: 20170606

REACTIONS (44)
  - Pyrexia [Recovered/Resolved]
  - Pneumoperitoneum [Recovered/Resolved]
  - Oedema [Unknown]
  - Cardiomyopathy [Unknown]
  - Weight decreased [Unknown]
  - Pleural effusion [Unknown]
  - Chest pain [Unknown]
  - Dizziness [Unknown]
  - Myocarditis [Unknown]
  - Aspergillus infection [Unknown]
  - Diarrhoea [Unknown]
  - Dyspnoea [Unknown]
  - Transitional cell carcinoma [Unknown]
  - Lung infiltration [Unknown]
  - Thrombocytopenia [Unknown]
  - Headache [Unknown]
  - Toxicity to various agents [Unknown]
  - Pericardial effusion [Unknown]
  - Hypoalbuminaemia [Unknown]
  - Weight increased [Unknown]
  - Brain natriuretic peptide increased [Unknown]
  - Heart rate increased [Unknown]
  - Hypokalaemia [Unknown]
  - Haematuria [Unknown]
  - Pollakiuria [Unknown]
  - Bundle branch block right [Unknown]
  - Thrombotic microangiopathy [Unknown]
  - Pneumothorax [Unknown]
  - Cough [Unknown]
  - Respiratory failure [Fatal]
  - Blood creatinine increased [Unknown]
  - Pulmonary oedema [Unknown]
  - Pneumonia pseudomonal [Unknown]
  - Pneumonia [Unknown]
  - Device related infection [Unknown]
  - Acute kidney injury [Unknown]
  - Cardiac failure chronic [Unknown]
  - Hyponatraemia [Unknown]
  - Electrocardiogram change [Unknown]
  - Pneumatosis intestinalis [Recovered/Resolved]
  - Blood beta-D-glucan increased [Unknown]
  - Nausea [Unknown]
  - Sinus rhythm [Unknown]
  - Pulmonary mass [Recovering/Resolving]
